FAERS Safety Report 5913211-0 (Version None)
Quarter: 2008Q4

REPORT INFORMATION
  Report Type: 
  Country: None (occurrence: None)
  Receive Date: 20081006
  Receipt Date: 20080929
  Transmission Date: 20090506
  Serious: Yes (Hospitalization, Other)
  Sender: FDA-Public Use
  Company Number: 2008SP002067

PATIENT
  Age: 53 Year
  Sex: Female
  Weight: 85.7298 kg

DRUGS (2)
  1. PEG-INTRON [Suspect]
     Indication: HEPATITIS C
     Dosage: SC
     Route: 058
     Dates: start: 20041104, end: 20080928
  2. RIBAVIRIN [Suspect]
     Indication: HEPATITIS C
     Dosage: PO
     Route: 048
     Dates: start: 20071104, end: 20080928

REACTIONS (31)
  - ABDOMINAL PAIN UPPER [None]
  - ANAEMIA [None]
  - BLISTER [None]
  - BLOOD IRON DECREASED [None]
  - BLOOD POTASSIUM DECREASED [None]
  - BONE MARROW DISORDER [None]
  - BRONCHITIS [None]
  - CHILLS [None]
  - DEHYDRATION [None]
  - DIARRHOEA [None]
  - DYSGEUSIA [None]
  - FEELING ABNORMAL [None]
  - FEELING COLD [None]
  - HYPOPHAGIA [None]
  - IMMUNE SYSTEM DISORDER [None]
  - INFLUENZA [None]
  - INJECTION SITE DRYNESS [None]
  - INJECTION SITE ERYTHEMA [None]
  - INJECTION SITE RASH [None]
  - INSOMNIA [None]
  - MUSCLE SPASMS [None]
  - OROPHARYNGEAL BLISTERING [None]
  - PAIN IN EXTREMITY [None]
  - PALLOR [None]
  - PNEUMONIA [None]
  - RESPIRATORY DISTRESS [None]
  - SINUS HEADACHE [None]
  - SINUSITIS [None]
  - SOMNOLENCE [None]
  - WEIGHT DECREASED [None]
  - WHITE BLOOD CELL COUNT DECREASED [None]
